FAERS Safety Report 5321478-5 (Version None)
Quarter: 2007Q1

REPORT INFORMATION
  Report Type: 
  Country: None (occurrence: None)
  Receive Date: 20070215
  Receipt Date: 20061122
  Transmission Date: 20070707
  Serious: No
  Sender: FDA-Public Use
  Company Number: 200616622BWH

PATIENT
  Age: 83 Year
  Sex: Male

DRUGS (5)
  1. NEXAVAR [Suspect]
     Indication: RENAL CELL CARCINOMA STAGE UNSPECIFIED
     Dosage: 200 MG, BID, ORAL
     Route: 048
     Dates: start: 20061111, end: 20061123
  2. ENALAPRIL [Concomitant]
     Indication: BONE NEOPLASM MALIGNANT
  3. WELLBUTRIN XL [Concomitant]
  4. ACTOS [Concomitant]
  5. TOPROL-XL [Concomitant]

REACTIONS (1)
  - BLOOD PRESSURE INCREASED [None]
